FAERS Safety Report 8379222-3 (Version None)
Quarter: 2012Q2

REPORT INFORMATION
  Report Type: 
  Country: None (occurrence: None)
  Receive Date: 20120523
  Receipt Date: 20120515
  Transmission Date: 20120825
  Serious: Yes (Other)
  Sender: FDA-Public Use
  Company Number: US-US-EMD SERONO, INC.-7022917

PATIENT
  Sex: Female
  Weight: 50 kg

DRUGS (3)
  1. SOLU-MEDROL [Concomitant]
     Indication: PRODUCT USED FOR UNKNOWN INDICATION
  2. LIPITOR [Concomitant]
     Indication: BLOOD CHOLESTEROL INCREASED
  3. NOVANTRONE [Suspect]
     Indication: MULTIPLE SCLEROSIS
     Dates: start: 20070426, end: 20090320

REACTIONS (5)
  - DECREASED APPETITE [None]
  - NAUSEA [None]
  - ALOPECIA [None]
  - EJECTION FRACTION DECREASED [None]
  - FATIGUE [None]
